FAERS Safety Report 13638580 (Version 2)
Quarter: 2017Q3

REPORT INFORMATION
  Report Type: Report from Study
  Country: BR (occurrence: BR)
  Receive Date: 20170609
  Receipt Date: 20170720
  Transmission Date: 20171127
  Serious: Yes (Other)
  Sender: FDA-Public Use
  Company Number: PHHY2017BR084909

PATIENT
  Sex: Male
  Weight: 69 kg

DRUGS (3)
  1. EXELON [Suspect]
     Active Substance: RIVASTIGMINE TARTRATE
     Indication: PRODUCT USED FOR UNKNOWN INDICATION
     Route: 048
  2. EXELON PATCH [Suspect]
     Active Substance: RIVASTIGMINE
     Indication: MEMORY IMPAIRMENT
     Dosage: 4.6 MG, QD, PATCH (5 CM2)
     Route: 062
  3. EXELON PATCH [Suspect]
     Active Substance: RIVASTIGMINE
     Dosage: 9.5 MG, QD, PATCH (10 CM2) (ONCE A DAY AT NIGHT)
     Route: 062

REACTIONS (11)
  - Application site hypersensitivity [Unknown]
  - Chikungunya virus infection [Unknown]
  - Body height decreased [Unknown]
  - Abdominal discomfort [Unknown]
  - Zika virus infection [Unknown]
  - Application site pruritus [Unknown]
  - Application site erythema [Unknown]
  - Arthropod bite [Unknown]
  - Application site reaction [Unknown]
  - Dengue fever [Unknown]
  - Product adhesion issue [Unknown]
